FAERS Safety Report 10270326 (Version 1)
Quarter: 2014Q2

REPORT INFORMATION
  Report Type: Spontaneous
  Country: US (occurrence: None)
  Receive Date: 20140626
  Receipt Date: 20140626
  Transmission Date: 20141212
  Serious: Yes (Other)
  Sender: FDA-Public Use
  Company Number: 2404702

PATIENT
  Age: 10 Year
  Sex: Male
  Weight: 32.2 kg

DRUGS (6)
  1. CARBOPLATIN [Suspect]
     Indication: OCULAR NEOPLASM
     Route: 041
     Dates: start: 20131204
  2. CARBOPLATIN [Suspect]
     Indication: NEUROFIBROMATOSIS
     Route: 041
     Dates: start: 20131204
  3. VINCRISTINE (VINCRISTINE SULFATE) [Concomitant]
  4. BENADRYL [Concomitant]
  5. HYDROCORTISONE [Concomitant]
  6. ZOFRAN [Concomitant]

REACTIONS (3)
  - Cough [None]
  - Drooling [None]
  - Urticaria [None]
